FAERS Safety Report 15923515 (Version 1)
Quarter: 2019Q1

REPORT INFORMATION
  Report Type: Spontaneous
  Country: GB (occurrence: GB)
  Receive Date: 20190206
  Receipt Date: 20190206
  Transmission Date: 20190417
  Serious: Yes (Other)
  Sender: FDA-Public Use
  Company Number: GB-ACCORD-105241

PATIENT
  Age: 1 Hour
  Sex: Male
  Weight: 2.84 kg

DRUGS (2)
  1. PAROXETINE. [Suspect]
     Active Substance: PAROXETINE
     Indication: AFFECTIVE DISORDER
     Dosage: IN THE MORNING.
     Route: 064
  2. CLOZAPINE. [Suspect]
     Active Substance: CLOZAPINE
     Indication: SCHIZOPHRENIA
     Dosage: RECEIVED BY MOTHER 200 MG IN THE MORNING. 400 MG AT NIGHT.
     Route: 064

REACTIONS (5)
  - Foetal exposure during pregnancy [Unknown]
  - Infantile back arching [Unknown]
  - Neonatal respiratory distress [Unknown]
  - Somnolence neonatal [Unknown]
  - Extrapyramidal disorder [Recovered/Resolved with Sequelae]
